FAERS Safety Report 23641642 (Version 1)
Quarter: 2024Q1

REPORT INFORMATION
  Report Type: Other
  Country: CN (occurrence: CN)
  Receive Date: 20240318
  Receipt Date: 20240318
  Transmission Date: 20240410
  Serious: Yes (Hospitalization)
  Sender: FDA-Public Use
  Company Number: CN-ASTELLAS-2024US008092

PATIENT
  Age: 25 Year
  Sex: Male

DRUGS (1)
  1. CRESEMBA [Suspect]
     Active Substance: ISAVUCONAZONIUM SULFATE
     Indication: Fungal infection
     Route: 041
     Dates: start: 20240128, end: 20240129

REACTIONS (4)
  - Suffocation feeling [Recovering/Resolving]
  - Confusional state [Recovering/Resolving]
  - Chest discomfort [Recovering/Resolving]
  - Off label use [Unknown]

NARRATIVE: CASE EVENT DATE: 20240128
